FAERS Safety Report 8818506 (Version 6)
Quarter: 2013Q2

REPORT INFORMATION
  Report Type: Report from Study
  Country: AR (occurrence: AR)
  Receive Date: 20121001
  Receipt Date: 20130409
  Transmission Date: 20140414
  Serious: Yes (Death, Hospitalization, Disabling)
  Sender: FDA-Public Use
  Company Number: AR-BRISTOL-MYERS SQUIBB COMPANY-17005448

PATIENT
  Age: 71 Year
  Sex: Male

DRUGS (1)
  1. IPILIMUMAB [Suspect]
     Indication: MALIGNANT MELANOMA
     Dosage: 1DF=2.7ML/MIN
     Route: 042
     Dates: start: 20120723, end: 20120903

REACTIONS (2)
  - Malignant neoplasm progression [Fatal]
  - Dehydration [Recovered/Resolved with Sequelae]
